FAERS Safety Report 7020481-7 (Version None)
Quarter: 2010Q3

REPORT INFORMATION
  Report Type: 
  Country: None (occurrence: None)
  Receive Date: 20100929
  Receipt Date: 20100921
  Transmission Date: 20110219
  Serious: Yes (Other)
  Sender: FDA-Public Use
  Company Number: CA-ROCHE-728748

PATIENT
  Sex: Male

DRUGS (2)
  1. BEVACIZUMAB [Suspect]
     Indication: HEPATIC CANCER METASTATIC
     Route: 042
     Dates: start: 20100804, end: 20100818
  2. TENOFOVIR [Concomitant]

REACTIONS (1)
  - LIVER INJURY [None]
